FAERS Safety Report 14292754 (Version 1)
Quarter: 2017Q4

REPORT INFORMATION
  Report Type: Spontaneous
  Country: US (occurrence: US)
  Receive Date: 20171215
  Receipt Date: 20171215
  Transmission Date: 20180321
  Serious: No
  Sender: FDA-Public Use
  Company Number: US-BAUSCH-BL-2017-007777

PATIENT
  Age: 81 Year
  Sex: Female
  Weight: 49.94 kg

DRUGS (3)
  1. LEVOTHYROXINE. [Concomitant]
     Active Substance: LEVOTHYROXINE
     Indication: THYROID DISORDER
  2. TIMOPTIC [Suspect]
     Active Substance: TIMOLOL MALEATE
     Indication: INTRAOCULAR PRESSURE INCREASED
     Dosage: INTO LEFT EYE
     Route: 047
     Dates: start: 20170127, end: 20170606
  3. DIAZEPAM. [Concomitant]
     Active Substance: DIAZEPAM
     Indication: ANXIETY
     Route: 048
     Dates: start: 2016

REACTIONS (6)
  - Drug administered at inappropriate site [Unknown]
  - Eyelid disorder [Recovering/Resolving]
  - Dizziness [Not Recovered/Not Resolved]
  - Contraindicated product administered [Unknown]
  - Balance disorder [Not Recovered/Not Resolved]
  - Oral pain [Recovering/Resolving]

NARRATIVE: CASE EVENT DATE: 201704
